FAERS Safety Report 20195495 (Version 1)
Quarter: 2021Q4

REPORT INFORMATION
  Report Type: Spontaneous
  Country: FR (occurrence: FR)
  Receive Date: 20211216
  Receipt Date: 20211216
  Transmission Date: 20220303
  Serious: Yes (Hospitalization)
  Sender: FDA-Public Use
  Company Number: FR-FRESENIUS KABI-FK202111602

PATIENT
  Age: 75 Year
  Sex: Female
  Weight: 52 kg

DRUGS (17)
  1. OXALIPLATIN [Suspect]
     Active Substance: OXALIPLATIN
     Indication: Adenocarcinoma pancreas
     Dosage: AT CURE 4REINTRODUCTION AT 70 PERCENT OF THE DOSAGE
     Route: 042
     Dates: start: 20210525
  2. OXALIPLATIN [Suspect]
     Active Substance: OXALIPLATIN
     Dosage: 85 MILLIGRAM/SQ. METER, OXALIPLATINE ACCORD 5 MG/ML, CONCENTRATE FOR SOLUTION FOR INFUSIONINFUSED OV
     Route: 042
  3. OXALIPLATIN [Suspect]
     Active Substance: OXALIPLATIN
     Dosage: UNK, AT CURE 5 OVER 2 HOURS70 PERCENT OF THE DOSE OF OXALIPLATINE OVER 2 HOURS
     Route: 042
  4. IRINOTECAN [Suspect]
     Active Substance: IRINOTECAN
     Indication: Adenocarcinoma pancreas
     Dosage: UNK, AT CURE 3
     Route: 042
     Dates: start: 20210511
  5. IRINOTECAN [Suspect]
     Active Substance: IRINOTECAN
     Dosage: UNK, IRINOTECAN KABI 20 MG/ML CONCENTRATE FOR SOLUTION FOR INFUSION1ST CURE (C1)
     Route: 042
     Dates: start: 20210412
  6. IRINOTECAN [Suspect]
     Active Substance: IRINOTECAN
     Dosage: UNK, THE PATIENT WAS TREATED WITH THE COMPLETE DOSE OF IRINOTECAN WITH AN INFUSION OVER 3 HOURSAT CU
     Route: 042
     Dates: start: 20210608
  7. IRINOTECAN [Suspect]
     Active Substance: IRINOTECAN
     Dosage: UNK, 2ND CURE (C2)
     Route: 042
     Dates: start: 20210427
  8. CLORAZEPATE DIPOTASSIUM [Suspect]
     Active Substance: CLORAZEPATE DIPOTASSIUM
     Indication: Premedication
     Dosage: 10 MILLIGRAM, STARTED BEFORE CHEMOTHERAPY
     Route: 065
     Dates: start: 20210608
  9. FILGRASTIM [Concomitant]
     Active Substance: FILGRASTIM
     Indication: Product used for unknown indication
     Dosage: UNK, PER DAY AT D5 OF THE CURE
     Route: 058
  10. PANCREATIN [Concomitant]
     Active Substance: PANCRELIPASE
     Indication: Product used for unknown indication
     Dosage: 40000 UI 2 IN MORNING, 2 AT LUNCH AND 2 IN EVENING
     Route: 065
  11. LANSOPRAZOLE [Concomitant]
     Active Substance: LANSOPRAZOLE
     Indication: Product used for unknown indication
     Dosage: 30 MILLIGRAM, 1 IN MORNING
     Route: 065
  12. TINZAPARIN SODIUM [Concomitant]
     Active Substance: TINZAPARIN SODIUM
     Indication: Product used for unknown indication
     Dosage: 0.45 MILLILITER, PER DAY
     Route: 058
  13. APREPITANT [Concomitant]
     Active Substance: APREPITANT
     Indication: Product used for unknown indication
     Dosage: D2 AND D3
     Route: 065
  14. APREPITANT [Concomitant]
     Active Substance: APREPITANT
     Dosage: 125 MILLIGRAM D1
     Route: 065
  15. ONDANSETRON [Concomitant]
     Active Substance: ONDANSETRON
     Indication: Nausea
     Dosage: 8 MILLIGRAM
     Route: 065
  16. PENICILLIN V BENZATHINE [Concomitant]
     Active Substance: PENICILLIN V BENZATHINE
     Indication: Product used for unknown indication
     Dosage: 1 MUI 1 IN MORNING AND 1 IN EVENING
     Route: 065
  17. TRIMEBUTINE [Concomitant]
     Active Substance: TRIMEBUTINE
     Indication: Pain
     Dosage: 100 MILLIGRAM
     Route: 065

REACTIONS (7)
  - Neuropathy peripheral [Recovering/Resolving]
  - Muscle spasms [Recovering/Resolving]
  - Aphasia [Recovering/Resolving]
  - Diarrhoea [Recovering/Resolving]
  - Dysarthria [Recovering/Resolving]
  - Asthenia [Recovering/Resolving]
  - Nausea [Recovering/Resolving]

NARRATIVE: CASE EVENT DATE: 20210412
